FAERS Safety Report 9962024 (Version 1)
Quarter: 2014Q1

REPORT INFORMATION
  Report Type: Spontaneous
  Country: US (occurrence: None)
  Receive Date: 20140304
  Receipt Date: 20140304
  Transmission Date: 20141002
  Serious: Yes (Hospitalization)
  Sender: FDA-Public Use
  Company Number: None

PATIENT
  Age: 72 Year
  Sex: Male
  Weight: 65.8 kg

DRUGS (2)
  1. MYCOPHENOLATE MOFETIL [Suspect]
     Indication: TRANSPLANT
     Route: 048
     Dates: start: 20030313
  2. TACROLIMUS [Suspect]
     Indication: TRANSPLANT
     Route: 048
     Dates: start: 20030515

REACTIONS (4)
  - Accidental overdose [None]
  - Diarrhoea [None]
  - Nausea [None]
  - Vomiting [None]
